FAERS Safety Report 12408465 (Version 1)
Quarter: 2016Q2

REPORT INFORMATION
  Report Type: Spontaneous
  Country: DE (occurrence: DE)
  Receive Date: 20160526
  Receipt Date: 20160526
  Transmission Date: 20160815
  Serious: Yes (Life-Threatening, Hospitalization)
  Sender: FDA-Public Use
  Company Number: DE-TEVA-660986GER

PATIENT
  Age: 68 Year
  Sex: Male
  Weight: 83 kg

DRUGS (1)
  1. PROPOFOL. [Suspect]
     Active Substance: PROPOFOL
     Indication: DUPUYTREN^S CONTRACTURE OPERATION
     Route: 042

REACTIONS (8)
  - Product contamination [Unknown]
  - Septic shock [Unknown]
  - Systemic inflammatory response syndrome [Unknown]
  - Multiple organ dysfunction syndrome [Unknown]
  - Drug dispensing error [Unknown]
  - Klebsiella infection [Unknown]
  - Anaemia [Unknown]
  - Bacterial sepsis [Unknown]

NARRATIVE: CASE EVENT DATE: 20160114
